FAERS Safety Report 22140981 (Version 1)
Quarter: 2023Q1

REPORT INFORMATION
  Report Type: Report from Study
  Country: US (occurrence: US)
  Receive Date: 20230327
  Receipt Date: 20230327
  Transmission Date: 20230418
  Serious: Yes (Death, Hospitalization, Other)
  Sender: FDA-Public Use
  Company Number: US-MIRATI-MT2023PM03625

PATIENT

DRUGS (2)
  1. KRAZATI [Suspect]
     Active Substance: ADAGRASIB
     Indication: Lung neoplasm malignant
     Dosage: 600 MG, BID
     Route: 048
     Dates: start: 20230306, end: 20230308
  2. KRAZATI [Suspect]
     Active Substance: ADAGRASIB
     Dosage: 600 MG, QD
     Route: 048
     Dates: start: 20230315

REACTIONS (8)
  - Death [Fatal]
  - COVID-19 [Recovering/Resolving]
  - Pneumonia [Recovering/Resolving]
  - Hypotension [Not Recovered/Not Resolved]
  - Sepsis [Recovering/Resolving]
  - Nasopharyngitis [Unknown]
  - Oropharyngeal pain [Unknown]
  - Productive cough [Unknown]

NARRATIVE: CASE EVENT DATE: 20230308
